FAERS Safety Report 5811933-3 (Version None)
Quarter: 2008Q3

REPORT INFORMATION
  Report Type: 
  Country: None (occurrence: None)
  Receive Date: 20080716
  Receipt Date: 20080711
  Transmission Date: 20090109
  Serious: Yes (Hospitalization)
  Sender: FDA-Public Use
  Company Number: US-AMGEN-US293983

PATIENT
  Sex: Male

DRUGS (5)
  1. ENBREL [Suspect]
     Indication: RHEUMATOID ARTHRITIS
     Route: 058
     Dates: start: 20021101, end: 20051201
  2. PREDNISONE TAB [Concomitant]
     Route: 065
  3. LIPITOR [Concomitant]
     Route: 065
     Dates: start: 19990101
  4. ATENOLOL [Concomitant]
     Route: 065
     Dates: start: 20000101
  5. FLOMAX [Concomitant]
     Route: 065
     Dates: start: 19990701

REACTIONS (1)
  - RESPIRATORY DISTRESS [None]
